FAERS Safety Report 7724076-9 (Version None)
Quarter: 2011Q3

REPORT INFORMATION
  Report Type: 
  Country: None (occurrence: None)
  Receive Date: 20110901
  Receipt Date: 20110829
  Transmission Date: 20111222
  Serious: Yes (Other)
  Sender: FDA-Public Use
  Company Number: US-BAYER-2011-059400

PATIENT
  Age: 60 Year
  Sex: Female

DRUGS (3)
  1. NEXAVAR [Suspect]
     Indication: SOFT TISSUE NEOPLASM
     Dosage: 200 MG, BID
     Dates: start: 20110622, end: 20110624
  2. NEXAVAR [Suspect]
     Dosage: 400 MG, BID
     Dates: start: 20110628, end: 20110819
  3. NEXAVAR [Suspect]
     Dosage: 600 MG, 400 MG AM AND 200 MG PM
     Dates: start: 20110625, end: 20110627

REACTIONS (8)
  - GAIT DISTURBANCE [None]
  - PAIN IN EXTREMITY [None]
  - BLISTER [None]
  - SOFT TISSUE NEOPLASM [None]
  - ABASIA [None]
  - DECREASED APPETITE [None]
  - STOMATITIS [None]
  - GLOSSODYNIA [None]
